FAERS Safety Report 8477027-6 (Version None)
Quarter: 2012Q2

REPORT INFORMATION
  Report Type: 
  Country: None (occurrence: None)
  Receive Date: 20120629
  Receipt Date: 20120625
  Transmission Date: 20120825
  Serious: Yes (Hospitalization)
  Sender: FDA-Public Use
  Company Number: US-AMGEN-USASP2012039318

PATIENT
  Age: 62 Year
  Sex: Male

DRUGS (1)
  1. ENBREL [Suspect]
     Indication: PSORIASIS
     Dosage: 50 MG, QWK
     Dates: start: 20110519

REACTIONS (9)
  - SCIATICA [None]
  - BACK PAIN [None]
  - MUSCULAR WEAKNESS [None]
  - LIMB DISCOMFORT [None]
  - SPINAL CORD COMPRESSION [None]
  - WALKING AID USER [None]
  - UMBILICAL HERNIA [None]
  - FALL [None]
  - PROCEDURAL PAIN [None]
